FAERS Safety Report 25740426 (Version 1)
Quarter: 2025Q3

REPORT INFORMATION
  Report Type: Spontaneous
  Country: US (occurrence: None)
  Receive Date: 20250828
  Receipt Date: 20250828
  Transmission Date: 20251021
  Serious: No
  Sender: FDA-CTU
  Company Number: None

PATIENT
  Age: 53 Year
  Sex: Female
  Weight: 72.45 kg

DRUGS (2)
  1. GLATIRAMER ACETATE [Suspect]
     Active Substance: GLATIRAMER ACETATE
     Indication: Multiple sclerosis
     Dosage: ?20 MG/ML DAILY SUBCUTNEOUS
     Route: 058
     Dates: start: 20250507
  2. VITAMIN D3 1.25MG [Concomitant]
     Dates: start: 20241024

REACTIONS (2)
  - Injection site swelling [None]
  - Injection site vesicles [None]

NARRATIVE: CASE EVENT DATE: 20250828
